FAERS Safety Report 4891068-7 (Version None)
Quarter: 2006Q1

REPORT INFORMATION
  Report Type: 
  Country: None (occurrence: None)
  Receive Date: 20060123
  Receipt Date: 20060103
  Transmission Date: 20060701
  Serious: Yes (Life-Threatening, Hospitalization)
  Sender: FDA-Public Use
  Company Number: 219928

PATIENT
  Age: 46 Year
  Sex: Female
  Weight: 80 kg

DRUGS (2)
  1. HERCEPTIN [Suspect]
     Indication: BREAST CANCER
     Dosage: 6 MG/KG, Q3W, INTRAVENOUS
     Route: 042
     Dates: start: 20031029
  2. TAXOL [Suspect]
     Indication: METASTASIS
     Dosage: 175 MG/M2, Q3W, INTRAVENOUS
     Route: 042
     Dates: start: 20031029, end: 20050929

REACTIONS (4)
  - BILE DUCT STENOSIS [None]
  - METASTASES TO LIVER [None]
  - PULMONARY FIBROSIS [None]
  - SOMNOLENCE [None]
